FAERS Safety Report 23763611 (Version 1)
Quarter: 2024Q2

REPORT INFORMATION
  Report Type: Spontaneous
  Country: US (occurrence: None)
  Receive Date: 20240419
  Receipt Date: 20240419
  Transmission Date: 20240716
  Serious: Yes (Hospitalization)
  Sender: FDA-Public Use
  Company Number: None

PATIENT
  Age: 80 Year
  Sex: Female

DRUGS (2)
  1. NUPLAZID [Suspect]
     Active Substance: PIMAVANSERIN TARTRATE
     Indication: Parkinson^s disease psychosis
     Dosage: 34 MG DAILY ORAL?
     Route: 048
     Dates: start: 20230622
  2. NUPLAZID [Concomitant]
     Active Substance: PIMAVANSERIN TARTRATE
     Dates: start: 20230622

REACTIONS (5)
  - Gait inability [None]
  - Fall [None]
  - Arthralgia [None]
  - Pain in extremity [None]
  - Intentional dose omission [None]

NARRATIVE: CASE EVENT DATE: 20240327
